FAERS Safety Report 23533519 (Version 1)
Quarter: 2024Q1

REPORT INFORMATION
  Report Type: Spontaneous
  Country: US (occurrence: None)
  Receive Date: 20240216
  Receipt Date: 20240216
  Transmission Date: 20240409
  Serious: Yes (Hospitalization)
  Sender: FDA-Public Use
  Company Number: None

PATIENT
  Sex: Female

DRUGS (1)
  1. AMBRISENTAN [Suspect]
     Active Substance: AMBRISENTAN
     Indication: Pulmonary hypertension
     Dosage: FREQUENCY : DAILY;?
     Route: 048

REACTIONS (6)
  - Paraesthesia [None]
  - Paraesthesia [None]
  - Oxygen saturation decreased [None]
  - Dysstasia [None]
  - Periorbital swelling [None]
  - Hypoaesthesia [None]
